FAERS Safety Report 18446230 (Version 2)
Quarter: 2022Q1

REPORT INFORMATION
  Report Type: Spontaneous
  Country: DK (occurrence: DK)
  Receive Date: 20201030
  Receipt Date: 20220316
  Transmission Date: 20220424
  Serious: Yes (Hospitalization)
  Sender: FDA-Public Use
  Company Number: None

PATIENT
  Age: 24 Year
  Sex: Female
  Weight: 60 kg

DRUGS (2)
  1. MIRENA [Suspect]
     Active Substance: LEVONORGESTREL
     Indication: Contraception
     Dosage: 20?G/DAY
     Route: 015
     Dates: start: 20200915, end: 20200928
  2. MIRENA [Suspect]
     Active Substance: LEVONORGESTREL
     Indication: Contraception
     Dosage: 20?G/DAY
     Route: 015
     Dates: start: 20200915, end: 20200928

REACTIONS (10)
  - Anxiety [Unknown]
  - Dyspnoea [Unknown]
  - Palpitations [Unknown]
  - Suffocation feeling [Unknown]
  - Myalgia [None]
  - Chest discomfort [None]
  - Headache [None]
  - Dizziness [None]
  - Stress [None]
  - Restlessness [None]

NARRATIVE: CASE EVENT DATE: 20200901
